FAERS Safety Report 15614953 (Version 2)
Quarter: 2018Q4

REPORT INFORMATION
  Report Type: Spontaneous
  Country: US (occurrence: US)
  Receive Date: 20181114
  Receipt Date: 20181205
  Transmission Date: 20190205
  Serious: Yes (Other)
  Sender: FDA-Public Use
  Company Number: US-ROCHE-2212170

PATIENT
  Sex: Male

DRUGS (3)
  1. SOLIRIS [Concomitant]
     Active Substance: ECULIZUMAB
     Indication: MYASTHENIA GRAVIS
     Route: 042
     Dates: start: 20180907
  2. SOLIRIS [Concomitant]
     Active Substance: ECULIZUMAB
     Dosage: 10 MG/ML
     Route: 042
     Dates: start: 20180907
  3. CELLCEPT [Suspect]
     Active Substance: MYCOPHENOLATE MOFETIL\MYCOPHENOLATE MOFETIL HYDROCHLORIDE
     Indication: MYASTHENIA GRAVIS
     Route: 065

REACTIONS (3)
  - Intentional product use issue [Unknown]
  - Off label use [Unknown]
  - Gastrointestinal haemorrhage [Unknown]
